FAERS Safety Report 7076633-3 (Version None)
Quarter: 2010Q4

REPORT INFORMATION
  Report Type: 
  Country: None (occurrence: None)
  Receive Date: 20101029
  Receipt Date: 20101029
  Transmission Date: 20110411
  Serious: Yes (Other)
  Sender: FDA-Public Use
  Company Number: None

PATIENT
  Age: 34 Year
  Sex: Male
  Weight: 90.7194 kg

DRUGS (1)
  1. LAMICTAL [Suspect]
     Indication: BIPOLAR DISORDER
     Dosage: 25MG QD PO
     Route: 048
     Dates: start: 20100122, end: 20100125

REACTIONS (4)
  - COORDINATION ABNORMAL [None]
  - PYREXIA [None]
  - TREMOR [None]
  - VISUAL IMPAIRMENT [None]
